FAERS Safety Report 8018748-9 (Version None)
Quarter: 2012Q1

REPORT INFORMATION
  Report Type: 
  Country: None (occurrence: None)
  Receive Date: 20120103
  Receipt Date: 20120103
  Transmission Date: 20120608
  Serious: Yes (Other)
  Sender: FDA-Public Use
  Company Number: None

PATIENT
  Age: 54 Year
  Sex: Female
  Weight: 110 kg

DRUGS (20)
  1. LEVOTHYROXINE SODIUM [Concomitant]
     Route: 048
  2. FUROSEMIDE [Concomitant]
     Route: 048
  3. GABAPENTIN [Concomitant]
     Route: 048
  4. INSULIN GLARGINE [Concomitant]
     Route: 058
  5. MONTELUKAST [Concomitant]
     Route: 048
  6. HYDROMORPHONE HCL [Suspect]
     Indication: PAIN
     Dosage: 2 MG
     Route: 040
     Dates: start: 20110915, end: 20110916
  7. ERGOCALCIFEROL [Concomitant]
     Route: 048
  8. GUAIFENESIN LA [Concomitant]
     Route: 048
  9. INSULIN ASPART SLIDING SCALE [Concomitant]
     Route: 058
  10. LEVOFLOXACIN [Concomitant]
     Route: 042
  11. AMITRIPTYLINE HCL [Concomitant]
     Route: 048
  12. ENOXAPARIN [Concomitant]
     Route: 058
  13. FLUTICASONE/SALMETEROL 250/50 [Concomitant]
     Route: 048
  14. POLYETHYLENE GLYCOL [Concomitant]
     Route: 048
  15. PRAVASTATIN [Concomitant]
     Route: 048
  16. PREDNISONE TAB [Concomitant]
     Route: 048
  17. ALBUTEROL/IPRATROPIUM NEBULIZER [Concomitant]
     Route: 045
  18. ASPIRIN [Concomitant]
     Route: 048
  19. AZTREONAM [Concomitant]
     Route: 042
  20. DILTIAZEM CD [Concomitant]
     Route: 048

REACTIONS (4)
  - HYPOXIA [None]
  - LETHARGY [None]
  - RESPIRATORY DISORDER [None]
  - MENTAL STATUS CHANGES [None]
